FAERS Safety Report 18647907 (Version 1)
Quarter: 2020Q4

REPORT INFORMATION
  Report Type: Spontaneous
  Country: DE (occurrence: DE)
  Receive Date: 20201222
  Receipt Date: 20201222
  Transmission Date: 20210114
  Serious: Yes (Other)
  Sender: FDA-Public Use
  Company Number: DE-LUPIN PHARMACEUTICALS INC.-2020-10612

PATIENT
  Age: 17 Month
  Sex: Male

DRUGS (5)
  1. METFORMIN [Suspect]
     Active Substance: METFORMIN HYDROCHLORIDE
     Indication: DRUG THERAPY
     Dosage: 250 MILLIGRAM, IN THE MORNING, (250?0?125 MG)
     Route: 065
  2. METFORMIN [Suspect]
     Active Substance: METFORMIN HYDROCHLORIDE
     Dosage: 125 MILLIGRAM, AT NIGHT,  (250?0?125 MG)
     Route: 065
  3. INSULIN HUMAN [Suspect]
     Active Substance: INSULIN HUMAN
     Indication: PROPHYLAXIS
     Dosage: UNK
     Route: 065
  4. RUXOLITINIB [Concomitant]
     Active Substance: RUXOLITINIB
     Indication: AUTOIMMUNE LYMPHOPROLIFERATIVE SYNDROME
     Dosage: 15 MILLIGRAM/SQ. METER, QD
     Route: 065
  5. RUXOLITINIB [Concomitant]
     Active Substance: RUXOLITINIB
     Indication: TYPE 1 DIABETES MELLITUS
     Dosage: INCREASED TO 40 MG/M2/DAY WITHIN 2 WEEKS
     Route: 065

REACTIONS (1)
  - Drug ineffective [Unknown]
